FAERS Safety Report 8290815-4 (Version None)
Quarter: 2012Q2

REPORT INFORMATION
  Report Type: 
  Country: None (occurrence: None)
  Receive Date: 20120417
  Receipt Date: 20110506
  Transmission Date: 20120825
  Serious: Yes (Other)
  Sender: FDA-Public Use
  Company Number: US-BRISTOL-MYERS SQUIBB COMPANY-15724875

PATIENT
  Age: 67 Year
  Sex: Female
  Weight: 63 kg

DRUGS (1)
  1. HYDREA [Suspect]
     Dosage: THERAPY FROM:APPROXIMATELY 3 YEARS AGO  1DF:11 500MG PILLS  DOSE INCREASED TO 21 500MG PILLS/WK

REACTIONS (1)
  - NEOPLASM MALIGNANT [None]
